FAERS Safety Report 9660584 (Version 1)
Quarter: 2013Q4

REPORT INFORMATION
  Report Type: Spontaneous
  Country: JP (occurrence: JP)
  Receive Date: 20131031
  Receipt Date: 20131031
  Transmission Date: 20140711
  Serious: Yes (Other)
  Sender: FDA-Public Use
  Company Number: JP-PFIZER INC-2013306235

PATIENT
  Sex: Female

DRUGS (6)
  1. SOLANAX [Suspect]
     Dosage: STRENGTH 4 MG, UNK
  2. CYMBALTA [Concomitant]
     Dosage: STRENGTH 20 MG, UNK
  3. PAXIL [Concomitant]
     Dosage: STRENGTH 5 MG, UNK
  4. DEPAS [Concomitant]
     Dosage: STRENGTH 0.5 MG, UNK
  5. ZESTROMIN [Concomitant]
     Dosage: STRENGTH 0.25 MG, UNK
  6. SERTRALINE HYDROCHLORIDE [Concomitant]
     Dosage: 25 MG, UNK
     Dates: start: 20131022, end: 20131023

REACTIONS (1)
  - Suicide attempt [Unknown]
